FAERS Safety Report 10193491 (Version 1)
Quarter: 2014Q2

REPORT INFORMATION
  Report Type: Spontaneous
  Country: US (occurrence: US)
  Receive Date: 20140524
  Receipt Date: 20140524
  Transmission Date: 20141212
  Serious: No
  Sender: FDA-Public Use
  Company Number: US-SA-2014SA004770

PATIENT
  Age: 69 Year
  Sex: Female
  Weight: 95 kg

DRUGS (7)
  1. LANTUS SOLOSTAR [Suspect]
     Indication: TYPE 2 DIABETES MELLITUS
     Dosage: DOSE:70 UNIT(S)
     Route: 051
     Dates: start: 200601
  2. LANTUS [Suspect]
     Route: 065
     Dates: start: 200601
  3. SOLOSTAR [Concomitant]
  4. BENAZEPRIL [Concomitant]
     Indication: BLOOD PRESSURE
     Dates: start: 199501
  5. KLOR-CON [Concomitant]
     Dosage: KLOR CON 8EQ
     Dates: start: 199501
  6. ASPIRIN [Concomitant]
     Dates: start: 199001
  7. FUROSEMIDE [Concomitant]
     Dosage: 1/2 MG PER DAY
     Dates: start: 199501

REACTIONS (2)
  - Drug dose omission [Unknown]
  - Expired product administered [Unknown]
